FAERS Safety Report 23268956 (Version 1)
Quarter: 2023Q4

REPORT INFORMATION
  Report Type: Spontaneous
  Country: GB (occurrence: None)
  Receive Date: 20231206
  Receipt Date: 20231206
  Transmission Date: 20240109
  Serious: Yes (Other)
  Sender: FDA-Public Use
  Company Number: GB-Unichem Pharmaceuticals (USA) Inc-UCM202311-001538

PATIENT
  Sex: Male

DRUGS (2)
  1. RANOLAZINE [Suspect]
     Active Substance: RANOLAZINE
     Indication: Product used for unknown indication
     Dosage: UNKNOWN
  2. NICORANDIL [Suspect]
     Active Substance: NICORANDIL
     Indication: Product used for unknown indication
     Dosage: UNKNOWN

REACTIONS (5)
  - Cardiac arrest [Recovering/Resolving]
  - Suicidal ideation [Unknown]
  - Ventricular fibrillation [Recovering/Resolving]
  - Hypotension [Recovering/Resolving]
  - Intentional overdose [Unknown]
